FAERS Safety Report 25902398 (Version 4)
Quarter: 2025Q4

REPORT INFORMATION
  Report Type: Report from Study
  Country: CA (occurrence: CA)
  Receive Date: 20251009
  Receipt Date: 20251107
  Transmission Date: 20260118
  Serious: Yes (Other)
  Sender: BAUSCH AND LOMB
  Company Number: CA-BAUSCH-BL-2019-020552

PATIENT
  Age: 72 Year
  Sex: Male
  Weight: 99.79 kg

DRUGS (6)
  1. SILIQ [Suspect]
     Active Substance: BRODALUMAB
     Indication: Psoriasis
     Dosage: 210 MG/ 1.5 ML, WEEKLY (AT 0,1)
     Route: 058
     Dates: start: 20190706, end: 201907
  2. SILIQ [Suspect]
     Active Substance: BRODALUMAB
     Dosage: RESTARTED INDUCTION (WEEK 0, 1, 2) IN DEC/2019
     Route: 058
     Dates: start: 201912, end: 202006
  3. SILIQ [Suspect]
     Active Substance: BRODALUMAB
     Dosage: 210MG/ 1.5 ML, Q 2 WEEKS
     Route: 058
     Dates: start: 202006
  4. PREDNISONE [Concomitant]
     Active Substance: PREDNISONE
     Indication: Spinal osteoarthritis
     Dates: start: 202005, end: 202007
  5. TELMISARTAN [Concomitant]
     Active Substance: TELMISARTAN
     Indication: Hypertension
     Route: 048
  6. AMLODIPINE [Concomitant]
     Active Substance: AMLODIPINE BESYLATE
     Indication: Hypertension
     Route: 048

REACTIONS (8)
  - Blood pressure increased [Not Recovered/Not Resolved]
  - Psoriasis [Recovered/Resolved]
  - Disease recurrence [Recovered/Resolved]
  - COVID-19 [Recovered/Resolved]
  - Injection site pain [Recovered/Resolved]
  - Influenza [Unknown]
  - Oropharyngeal pain [Recovered/Resolved]
  - Therapy interrupted [Unknown]

NARRATIVE: CASE EVENT DATE: 20190101
